FAERS Safety Report 16342814 (Version 1)
Quarter: 2019Q2

REPORT INFORMATION
  Report Type: Spontaneous
  Country: US (occurrence: US)
  Receive Date: 20190521
  Receipt Date: 20190521
  Transmission Date: 20190711
  Serious: No
  Sender: FDA-Public Use
  Company Number: None

PATIENT
  Age: 47 Year
  Sex: Female
  Weight: 30.15 kg

DRUGS (5)
  1. CYLOBENZAPRINE [Concomitant]
  2. TREXIMET [Concomitant]
     Active Substance: NAPROXEN SODIUM\SUMATRIPTAN SUCCINATE
  3. AIMOVIG [Suspect]
     Active Substance: ERENUMAB-AOOE
     Indication: MIGRAINE
     Dates: start: 20180601, end: 20180901
  4. MEMATINE [Concomitant]
     Active Substance: MEMANTINE
  5. ZONAMIDE [Concomitant]

REACTIONS (6)
  - Drug ineffective [None]
  - Constipation [None]
  - Fatigue [None]
  - Migraine [None]
  - Palpitations [None]
  - Alopecia [None]

NARRATIVE: CASE EVENT DATE: 20180603
